FAERS Safety Report 8615449-0 (Version None)
Quarter: 2012Q3

REPORT INFORMATION
  Report Type: 
  Country: None (occurrence: None)
  Receive Date: 20120823
  Receipt Date: 20120810
  Transmission Date: 20120928
  Serious: Yes (Hospitalization)
  Sender: FDA-Public Use
  Company Number: CO-ELI_LILLY_AND_COMPANY-CO201206006164

PATIENT
  Age: 52 Year
  Sex: Female

DRUGS (10)
  1. ACETAMINOPHEN [Concomitant]
  2. HUMALOG [Suspect]
     Indication: TYPE 2 DIABETES MELLITUS
     Dosage: 30 U, QD
     Route: 058
     Dates: start: 20120301
  3. LANTUS [Concomitant]
  4. LOSARTAN POTASSIUM [Concomitant]
  5. LYRICA [Concomitant]
  6. TRAMADOL HCL [Concomitant]
  7. HYDROCHLOROTHIAZIDE [Concomitant]
  8. HUMULIN N [Concomitant]
  9. HUMALOG [Suspect]
     Dosage: 32 U, QD
  10. HUMALOG [Suspect]
     Dosage: 5 U, QD

REACTIONS (4)
  - ERYTHEMA [None]
  - FEELING HOT [None]
  - WOUND [None]
  - CONTUSION [None]
